FAERS Safety Report 16030588 (Version 1)
Quarter: 2019Q1

REPORT INFORMATION
  Report Type: Spontaneous
  Country: US (occurrence: US)
  Receive Date: 20190304
  Receipt Date: 20190304
  Transmission Date: 20190418
  Serious: No
  Sender: FDA-Public Use
  Company Number: US-PFIZER INC-2019089516

PATIENT
  Age: 76 Year

DRUGS (1)
  1. LYRICA [Suspect]
     Active Substance: PREGABALIN
     Dosage: 150 MG, (TAKING THEM  EVERY OTHER DAY)

REACTIONS (2)
  - Product use issue [Unknown]
  - Gait disturbance [Unknown]
